FAERS Safety Report 18258740 (Version 1)
Quarter: 2020Q3

REPORT INFORMATION
  Report Type: Report from Study
  Country: US (occurrence: US)
  Receive Date: 20200911
  Receipt Date: 20200911
  Transmission Date: 20201103
  Serious: Yes (Other)
  Sender: FDA-Public Use
  Company Number: US-BAUSCH-BL-2020-025775

PATIENT
  Age: 44 Year
  Sex: Male
  Weight: 93.98 kg

DRUGS (3)
  1. APRISO [Suspect]
     Active Substance: MESALAMINE
     Indication: COLITIS ULCERATIVE
     Dosage: TAKE 4 CAPSULES BY MOUTH IN THE MORNING
     Route: 048
  2. ALPRAZOLAM. [Concomitant]
     Active Substance: ALPRAZOLAM
     Indication: PRODUCT USED FOR UNKNOWN INDICATION
     Dosage: 1 TABLET EVERY SIX HOURS AS NEEDED
     Route: 048
  3. APRISO [Suspect]
     Active Substance: MESALAMINE
     Indication: CROHN^S DISEASE
     Dosage: SELF?TAPERED DOWN TO 2 PER DAY
     Route: 048

REACTIONS (9)
  - Crohn^s disease [Recovering/Resolving]
  - Flatulence [Unknown]
  - Colitis ulcerative [Recovering/Resolving]
  - Haemorrhage [Recovering/Resolving]
  - Abdominal pain [Unknown]
  - Intentional product use issue [Unknown]
  - Abdominal distension [Unknown]
  - Diarrhoea [Recovering/Resolving]
  - Oral pain [Unknown]
